FAERS Safety Report 19771005 (Version 1)
Quarter: 2021Q3

REPORT INFORMATION
  Report Type: Spontaneous
  Country: US (occurrence: US)
  Receive Date: 20210901
  Receipt Date: 20210901
  Transmission Date: 20211014
  Serious: Yes (Hospitalization, Other)
  Sender: FDA-Public Use
  Company Number: US-PFIZER INC-202101073119

PATIENT
  Age: 77 Year
  Sex: Male

DRUGS (15)
  1. ZIDOVUDINE. [Concomitant]
     Active Substance: ZIDOVUDINE
     Indication: HUMAN T-CELL LYMPHOTROPIC VIRUS TYPE I INFECTION
     Dosage: 250 MG, 2X/DAY
  2. URSODIOL. [Concomitant]
     Active Substance: URSODIOL
     Indication: HYPERBILIRUBINAEMIA
     Dosage: 300 MG, DAILY
     Route: 048
  3. RIFAXIMIN. [Concomitant]
     Active Substance: RIFAXIMIN
     Indication: ASTERIXIS
  4. LACTULOSE. [Concomitant]
     Active Substance: LACTULOSE
     Indication: ASTERIXIS
     Dosage: 20 G, 3X/DAY
     Route: 048
  5. CYCLOPHOSPHAMIDE. [Suspect]
     Active Substance: CYCLOPHOSPHAMIDE
     Indication: ADULT T-CELL LYMPHOMA/LEUKAEMIA
     Dosage: 750 MG/M2, CYCLIC
  6. VINCRISTINE SULFATE. [Suspect]
     Active Substance: VINCRISTINE SULFATE
     Indication: ADULT T-CELL LYMPHOMA/LEUKAEMIA
     Dosage: 1 MG, CYCLIC
     Route: 065
  7. ASPARTAME;CHOLESTYRAMINE [Concomitant]
     Indication: HYPERBILIRUBINAEMIA
     Dosage: 4 G, 1X/DAY
     Route: 048
  8. DOXORUBICIN HCL [Suspect]
     Active Substance: DOXORUBICIN HYDROCHLORIDE
     Indication: ADULT T-CELL LYMPHOMA/LEUKAEMIA
     Dosage: UNK, CYCLIC
     Route: 065
  9. PREDNISONE. [Suspect]
     Active Substance: PREDNISONE
     Indication: ADULT T-CELL LYMPHOMA/LEUKAEMIA
     Dosage: 500 MG, CYCLIC (21?DAY CYCLE PREDNISONE 100MG (FOR 5DAYS))
  10. RIFAXIMIN. [Concomitant]
     Active Substance: RIFAXIMIN
     Indication: HEPATIC ENCEPHALOPATHY
     Dosage: 550 MG, 2X/DAY
     Route: 048
  11. LEVOTHYROXINE. [Concomitant]
     Active Substance: LEVOTHYROXINE
     Indication: HYPOTHYROIDISM
     Dosage: 75 UG, DAILY
  12. DOXAZOSIN [Concomitant]
     Active Substance: DOXAZOSIN MESYLATE
     Indication: BENIGN PROSTATIC HYPERPLASIA
     Dosage: 4 MG, DAILY
  13. LACTULOSE. [Concomitant]
     Active Substance: LACTULOSE
     Indication: HEPATIC ENCEPHALOPATHY
  14. FINASTERIDE. [Concomitant]
     Active Substance: FINASTERIDE
     Indication: BENIGN PROSTATIC HYPERPLASIA
     Dosage: 5 MG, 1X/DAY
  15. PRAVASTATIN. [Concomitant]
     Active Substance: PRAVASTATIN
     Indication: HYPERCHOLESTEROLAEMIA
     Dosage: 40 MG, 1X/DAY

REACTIONS (3)
  - Pancytopenia [Recovering/Resolving]
  - Anaemia [Recovering/Resolving]
  - Myelosuppression [Recovering/Resolving]
